FAERS Safety Report 6581032-4 (Version None)
Quarter: 2010Q1

REPORT INFORMATION
  Report Type: 
  Country: None (occurrence: None)
  Receive Date: 20100203
  Receipt Date: 20100118
  Transmission Date: 20100710
  Serious: Yes (Death)
  Sender: FDA-Public Use
  Company Number: NSR_00073_2010

PATIENT
  Age: 51 Year
  Sex: Female

DRUGS (8)
  1. IBUPROFEN [Suspect]
     Indication: DRUG USE FOR UNKNOWN INDICATION
     Dosage: DF, ORAL
     Route: 048
  2. ACETAMINOPHEN [Suspect]
     Indication: DRUG USE FOR UNKNOWN INDICATION
     Dosage: DF, ORAL
     Route: 048
  3. ACETAMINOPHEN AND HYDROCODONE BITARTRATE [Suspect]
     Indication: DRUG USE FOR UNKNOWN INDICATION
     Dosage: DF, ORAL
     Route: 048
  4. DIAZEPAM [Suspect]
     Indication: DRUG USE FOR UNKNOWN INDICATION
     Dosage: DF, ORAL
     Route: 048
  5. BENZODIAZEPINE DERIVATIVES [Suspect]
     Indication: DRUG USE FOR UNKNOWN INDICATION
     Dosage: DF, ORAL
     Route: 048
  6. FENTANYL [Suspect]
     Indication: DRUG USE FOR UNKNOWN INDICATION
     Dosage: DF, ORAL
     Route: 048
  7. EPHEDRINE SUL CAP [Suspect]
     Indication: DRUG USE FOR UNKNOWN INDICATION
     Dosage: DF, ORAL
     Route: 048
  8. MIDAZOLAM HCL [Suspect]
     Indication: DRUG USE FOR UNKNOWN INDICATION
     Dosage: DF, ORAL
     Route: 048

REACTIONS (2)
  - INTENTIONAL DRUG MISUSE [None]
  - POISONING [None]
